FAERS Safety Report 7951976-7 (Version None)
Quarter: 2011Q4

REPORT INFORMATION
  Report Type: 
  Country: None (occurrence: None)
  Receive Date: 20111201
  Receipt Date: 20111128
  Transmission Date: 20120403
  Serious: Yes (Hospitalization, Other)
  Sender: FDA-Public Use
  Company Number: JP-PFIZER INC-2011280051

PATIENT
  Age: 84 Year
  Sex: Female
  Weight: 51.247 kg

DRUGS (18)
  1. AZUNOL [Concomitant]
     Indication: PSORIASIS
     Dosage: 0.05 %
     Route: 003
  2. CINAL [Concomitant]
     Indication: PSORIASIS
     Dosage: 1 G, 2X/DAY
     Route: 048
  3. CLOBETASOL PROPIONATE [Concomitant]
     Indication: PSORIASIS
     Dosage: 0.05 %
     Route: 003
  4. ALDACTONE [Concomitant]
     Indication: OEDEMA PERIPHERAL
     Dosage: 25 MG, 1X/DAY
     Route: 048
  5. OMEPRAZOLE [Concomitant]
     Indication: GASTRITIS
     Dosage: 20 MG, 1X/DAY
     Route: 048
  6. LYRICA [Suspect]
     Indication: NEURALGIA
     Dosage: 75 MG, 1X/DAY
     Route: 048
     Dates: start: 20111104, end: 20111105
  7. SILECE [Suspect]
     Indication: INSOMNIA
     Dosage: 2 MG, 1X/DAY
     Route: 048
     Dates: end: 20111114
  8. GEBEN [Concomitant]
     Dosage: UNK
  9. SIGMART [Concomitant]
     Indication: ANGINA PECTORIS
     Dosage: 5 MG, 3X/DAY
     Route: 048
  10. PATANOL [Concomitant]
     Indication: CONJUNCTIVITIS
     Dosage: 0.1 %
     Route: 047
  11. ALLOPURINOL [Concomitant]
     Indication: HYPERURICOSURIA
     Dosage: 100 MG, 1X/DAY
     Route: 048
  12. MYONAL [Concomitant]
     Indication: NEURALGIA
     Dosage: 50 MG, 3X/DAY
     Route: 048
  13. LYRICA [Suspect]
     Indication: HYPOAESTHESIA
     Dosage: 75 MG, 2X/DAY
     Route: 048
     Dates: start: 20111105, end: 20111114
  14. LASIX [Concomitant]
     Indication: OEDEMA PERIPHERAL
     Dosage: 20 MG, 1X/DAY
     Route: 048
  15. BETAMETHASONE [Concomitant]
     Indication: PSORIASIS
     Dosage: 0.12 %
     Route: 003
  16. AMITRIPTYLINE HCL [Concomitant]
     Indication: NEURALGIA
     Dosage: 25 MG, 1X/DAY
     Route: 048
  17. ANPLAG [Concomitant]
     Indication: CIRCULATORY COLLAPSE
     Dosage: 50 MG, 3X/DAY
     Route: 048
  18. CLONAZEPAM [Concomitant]
     Indication: NEURALGIA
     Dosage: 0.5 MG, 2X/DAY
     Route: 048

REACTIONS (6)
  - DYSLALIA [None]
  - BLOOD UREA INCREASED [None]
  - BLOOD CREATININE INCREASED [None]
  - SOMNOLENCE [None]
  - DIZZINESS [None]
  - BRONCHITIS [None]
